FAERS Safety Report 14258481 (Version 1)
Quarter: 2017Q4

REPORT INFORMATION
  Report Type: Spontaneous
  Country: US (occurrence: US)
  Receive Date: 20171207
  Receipt Date: 20171207
  Transmission Date: 20180321
  Serious: No
  Sender: FDA-Public Use
  Company Number: US-PFIZER INC-2017521049

PATIENT
  Age: 82 Year
  Sex: Female
  Weight: 68.95 kg

DRUGS (2)
  1. FETZIMA [Concomitant]
     Active Substance: LEVOMILNACIPRAN HYDROCHLORIDE
     Indication: DEPRESSION
     Dosage: 20MG CAPSULE ONCE PER DAY AT 2:00PM
     Route: 048
     Dates: start: 20171105
  2. EFFEXOR XR [Suspect]
     Active Substance: VENLAFAXINE HYDROCHLORIDE
     Indication: DEPRESSION
     Dosage: 150MG CAPSULE ONCE PER DAY
     Route: 048

REACTIONS (1)
  - Drug ineffective [Unknown]
